FAERS Safety Report 9541580 (Version 1)
Quarter: 2013Q2

REPORT INFORMATION
  Report Type: Spontaneous
  Country: US (occurrence: None)
  Receive Date: 20130524
  Receipt Date: 20130524
  Transmission Date: 20140414
  Serious: Yes (Other)
  Sender: FDA-Public Use
  Company Number: PHEH2013US002238

PATIENT
  Age: 27 Year
  Sex: Male

DRUGS (1)
  1. GILENYA [Suspect]
     Indication: MULTIPLE SCLEROSIS
     Route: 048
     Dates: start: 20121228

REACTIONS (8)
  - Rhinorrhoea [None]
  - Pyrexia [None]
  - Abdominal discomfort [None]
  - Fatigue [None]
  - Pain [None]
  - Vision blurred [None]
  - Headache [None]
  - Cough [None]
